FAERS Safety Report 7758481-1 (Version None)
Quarter: 2011Q3

REPORT INFORMATION
  Report Type: 
  Country: None (occurrence: None)
  Receive Date: 20110919
  Receipt Date: 20110917
  Transmission Date: 20111222
  Serious: Yes (Other)
  Sender: FDA-Public Use
  Company Number: US-PFIZER INC-2011220493

PATIENT
  Sex: Male
  Weight: 88.43 kg

DRUGS (1)
  1. CHANTIX [Suspect]
     Indication: SMOKING CESSATION THERAPY
     Dosage: 0.5 MG, DAILY
     Route: 048
     Dates: start: 20110912

REACTIONS (4)
  - ANXIETY [None]
  - HALLUCINATION, AUDITORY [None]
  - AGITATION [None]
  - OEDEMA PERIPHERAL [None]
